FAERS Safety Report 4945909-5 (Version None)
Quarter: 2006Q1

REPORT INFORMATION
  Report Type: 
  Country: None (occurrence: None)
  Receive Date: 20060117
  Receipt Date: 20050113
  Transmission Date: 20060701
  Serious: Yes (Hospitalization)
  Sender: FDA-Public Use
  Company Number: A03200500122

PATIENT
  Age: 60 Year
  Sex: Female

DRUGS (4)
  1. PLAVIX [Suspect]
     Indication: STENT PLACEMENT
     Dosage: 75 MG QD - ORAL
     Route: 048
     Dates: start: 20041025
  2. ASPIRIN [Suspect]
     Indication: STENT PLACEMENT
     Dosage: 81 MG QD - ORAL
     Route: 048
     Dates: start: 20041025
  3. FUROSEMIDE [Concomitant]
  4. POTASSIUM [Concomitant]

REACTIONS (10)
  - ASTHENIA [None]
  - BLINDNESS [None]
  - BLOOD PRESSURE INCREASED [None]
  - CONFUSIONAL STATE [None]
  - CONTUSION [None]
  - DIARRHOEA [None]
  - LOSS OF CONTROL OF LEGS [None]
  - OEDEMA [None]
  - SKIN DISCOLOURATION [None]
  - VOMITING [None]
